FAERS Safety Report 7280109-8 (Version None)
Quarter: 2011Q1

REPORT INFORMATION
  Report Type: 
  Country: None (occurrence: None)
  Receive Date: 20110208
  Receipt Date: 20110127
  Transmission Date: 20110831
  Serious: Yes (Other)
  Sender: FDA-Public Use
  Company Number: ES-SANOFI-AVENTIS-2011SA005428

PATIENT

DRUGS (7)
  1. PACLITAXEL [Suspect]
     Indication: CHEMOTHERAPY
  2. OXALIPLATIN [Suspect]
     Indication: CHEMOTHERAPY
  3. CARBOPLATIN [Suspect]
     Indication: CHEMOTHERAPY
  4. CAPECITABINE [Suspect]
     Indication: CHEMOTHERAPY
  5. IRINOTECAN HCL [Suspect]
     Indication: CHEMOTHERAPY
  6. LEUCOVORIN CALCIUM [Suspect]
     Indication: CHEMOTHERAPY
  7. 5-FU [Suspect]
     Indication: CHEMOTHERAPY

REACTIONS (4)
  - ENCEPHALOPATHY [None]
  - MUCOSAL INFLAMMATION [None]
  - PERIPHERAL MOTOR NEUROPATHY [None]
  - PERIPHERAL SENSORY NEUROPATHY [None]
